FAERS Safety Report 8152310-2 (Version None)
Quarter: 2012Q1

REPORT INFORMATION
  Report Type: 
  Country: None (occurrence: None)
  Receive Date: 20120221
  Receipt Date: 20120213
  Transmission Date: 20120608
  Serious: Yes (Other)
  Sender: FDA-Public Use
  Company Number: US-BAYER-2011-023752

PATIENT
  Age: 29 Year
  Sex: Female
  Weight: 73.923 kg

DRUGS (2)
  1. MIRENA [Suspect]
     Dosage: 20 MCG/24HR, CONT
     Route: 015
     Dates: start: 20110203, end: 20110210
  2. MIRENA [Suspect]
     Indication: CONTRACEPTION
     Dosage: 20 MCG/24HR, CONT
     Route: 015
     Dates: start: 20110203, end: 20110203

REACTIONS (4)
  - DEVICE EXPULSION [None]
  - PROCEDURAL PAIN [None]
  - POST PROCEDURAL HAEMORRHAGE [None]
  - DEVICE DIFFICULT TO USE [None]
